FAERS Safety Report 8418747-9 (Version None)
Quarter: 2012Q2

REPORT INFORMATION
  Report Type: 
  Country: None (occurrence: None)
  Receive Date: 20120607
  Receipt Date: 20120530
  Transmission Date: 20120825
  Serious: Yes (Other)
  Sender: FDA-Public Use
  Company Number: FR-UCBSA-058449

PATIENT
  Age: 58 Year
  Sex: Female

DRUGS (8)
  1. NEUPRO [Suspect]
     Dosage: DAILY DOSE: 6 MG
     Dates: start: 20110901, end: 20120101
  2. ESCITALOPRAM [Concomitant]
     Dosage: DAILY DOSE: 10 MG
  3. MODOPAR [Suspect]
     Dosage: 600 MG DAILY
     Route: 048
     Dates: start: 20100601, end: 20110901
  4. PRAZEPAM [Concomitant]
     Dosage: DAILY DOSE: 20MG
  5. MIDODRINE HYDROCHLORIDE [Concomitant]
     Dosage: DAILY DOSE: 12.5 MG
  6. MODOPAR [Suspect]
     Dosage: DAILY DOSE: 650 MG
     Route: 048
     Dates: start: 20120101
  7. OMEPRAZOLE [Concomitant]
     Dosage: DAILY DOSE: 10 MG
  8. ISOPTIN [Concomitant]
     Dosage: DAILY DOSE: 120 MG

REACTIONS (5)
  - HYPERSEXUALITY [None]
  - EATING DISORDER [None]
  - IMPULSE-CONTROL DISORDER [None]
  - STEREOTYPY [None]
  - COMPULSIVE SHOPPING [None]
